FAERS Safety Report 6373263-3 (Version None)
Quarter: 2009Q3

REPORT INFORMATION
  Report Type: 
  Country: None (occurrence: None)
  Receive Date: 20090924
  Receipt Date: 20090918
  Transmission Date: 20100115
  Serious: Yes (Hospitalization, Other)
  Sender: FDA-Public Use
  Company Number: FR-JNJFOC-20090905641

PATIENT
  Age: 72 Year
  Sex: Male

DRUGS (5)
  1. TAVANIC [Suspect]
     Route: 048
     Dates: start: 20090307, end: 20090430
  2. TAVANIC [Suspect]
     Indication: UVEITIS
     Route: 048
     Dates: start: 20090307, end: 20090430
  3. ZELITREX [Suspect]
     Route: 048
     Dates: start: 20090307, end: 20090413
  4. ZELITREX [Suspect]
     Indication: UVEITIS
     Route: 048
     Dates: start: 20090307, end: 20090413
  5. TOBRADEX [Concomitant]
     Indication: UVEITIS
     Route: 047
     Dates: start: 20090321, end: 20090430

REACTIONS (8)
  - ANGINA PECTORIS [None]
  - BLOOD CREATININE INCREASED [None]
  - CYTOLYTIC HEPATITIS [None]
  - DRUG RASH WITH EOSINOPHILIA AND SYSTEMIC SYMPTOMS [None]
  - EOSINOPHILIA [None]
  - LYMPHADENOPATHY [None]
  - PYREXIA [None]
  - RASH [None]
